FAERS Safety Report 7455318-5 (Version None)
Quarter: 2011Q2

REPORT INFORMATION
  Report Type: 
  Country: None (occurrence: None)
  Receive Date: 20110503
  Receipt Date: 20110426
  Transmission Date: 20111010
  Serious: Yes (Other)
  Sender: FDA-Public Use
  Company Number: FR-BRISTOL-MYERS SQUIBB COMPANY-15708159

PATIENT
  Age: 82 Year
  Sex: Male

DRUGS (7)
  1. ERBITUX [Suspect]
     Indication: LUNG NEOPLASM MALIGNANT
     Route: 042
     Dates: start: 20110325
  2. FLUOROURACIL [Suspect]
     Indication: LUNG NEOPLASM MALIGNANT
     Dosage: FLUOROURACIL DAKOTA
     Route: 042
     Dates: start: 20110325
  3. APROVEL [Concomitant]
  4. XANAX [Concomitant]
  5. ENALAPRIL MALEATE [Concomitant]
  6. LEVOTHYROX [Concomitant]
  7. ZAMUDOL [Concomitant]

REACTIONS (1)
  - THROMBOCYTOPENIA [None]
